FAERS Safety Report 5022283-X (Version None)
Quarter: 2006Q2

REPORT INFORMATION
  Report Type: 
  Country: None (occurrence: None)
  Receive Date: 20060609
  Receipt Date: 20060403
  Transmission Date: 20061013
  Serious: Yes (Death)
  Sender: FDA-Public Use
  Company Number: JP-JPN-A200601132

PATIENT
  Age: 47 Year
  Sex: Male
  Weight: 56 kg

DRUGS (6)
  1. ZEFIX [Suspect]
     Indication: HEPATITIS B
     Dosage: 100MG PER DAY
     Route: 048
     Dates: start: 20050301
  2. HEPSERA [Concomitant]
     Indication: HEPATITIS B
     Dosage: 10MG PER DAY
     Route: 048
     Dates: start: 20060306
  3. URSO [Concomitant]
     Indication: HEPATITIS B
     Dosage: 600MG PER DAY
     Route: 048
     Dates: start: 20060310
  4. GASMOTIN [Concomitant]
     Indication: GASTRITIS
     Dosage: 15MG PER DAY
     Route: 048
     Dates: start: 20060310
  5. MARZULENE S [Concomitant]
     Indication: GASTRITIS
     Dosage: 1.5MG PER DAY
     Route: 048
     Dates: start: 20060310
  6. CHEMOTHERAPY [Concomitant]
     Indication: LYMPHOMA

REACTIONS (6)
  - CONDITION AGGRAVATED [None]
  - DISSEMINATED INTRAVASCULAR COAGULATION [None]
  - HEPATIC FAILURE [None]
  - HEPATITIS B [None]
  - PLATELET COUNT DECREASED [None]
  - RENAL FAILURE [None]
